FAERS Safety Report 4485287-1 (Version None)
Quarter: 2004Q4

REPORT INFORMATION
  Report Type: 
  Country: None (occurrence: None)
  Receive Date: 20041022
  Receipt Date: 20041022
  Transmission Date: 20050328
  Serious: Yes (Hospitalization)
  Sender: FDA-Public Use
  Company Number: None

PATIENT
  Age: 62 Year
  Sex: Female

DRUGS (6)
  1. FUROSEMIDE [Suspect]
     Indication: DIURETIC THERAPY
  2. HYDROCHLOROTHIAZIDE [Suspect]
     Indication: DIURETIC THERAPY
  3. LANOXIN [Concomitant]
  4. DIAMOX [Concomitant]
  5. LASIX [Concomitant]
  6. HYDROCHLOROTHIAZIDE -HYDRODIURIL- [Concomitant]

REACTIONS (6)
  - ATRIAL FIBRILLATION [None]
  - DECREASED APPETITE [None]
  - NAUSEA [None]
  - TREATMENT NONCOMPLIANCE [None]
  - VOMITING [None]
  - WEIGHT DECREASED [None]
